FAERS Safety Report 17749530 (Version 2)
Quarter: 2020Q3

REPORT INFORMATION
  Report Type: Report from Study
  Country: None (occurrence: CA)
  Receive Date: 20200506
  Receipt Date: 20200922
  Transmission Date: 20201102
  Serious: Yes (Other)
  Sender: FDA-Public Use
  Company Number: CA-ABBVIE-20K-028-3391559-00

PATIENT
  Age: 53 Year
  Sex: Female

DRUGS (1)
  1. HUMIRA [Suspect]
     Active Substance: ADALIMUMAB
     Indication: CROHN^S DISEASE
     Route: 058
     Dates: start: 20080129

REACTIONS (10)
  - Intestinal obstruction [Recovered/Resolved]
  - Inflammation [Not Recovered/Not Resolved]
  - Vomiting [Unknown]
  - Intestinal obstruction [Unknown]
  - Gastrointestinal stoma complication [Unknown]
  - Ileal stenosis [Not Recovered/Not Resolved]
  - Obstruction [Recovered/Resolved]
  - Impaired quality of life [Not Recovered/Not Resolved]
  - Abdominal pain [Not Recovered/Not Resolved]
  - Impaired work ability [Not Recovered/Not Resolved]

NARRATIVE: CASE EVENT DATE: 202004
